FAERS Safety Report 15626233 (Version 1)
Quarter: 2018Q4

REPORT INFORMATION
  Report Type: Spontaneous
  Country: US (occurrence: US)
  Receive Date: 20181116
  Receipt Date: 20181116
  Transmission Date: 20190205
  Serious: No
  Sender: FDA-Public Use
  Company Number: None

PATIENT
  Sex: Female

DRUGS (1)
  1. ADDYI [Suspect]
     Active Substance: FLIBANSERIN
     Indication: FEMALE SEXUAL AROUSAL DISORDER
     Route: 048

REACTIONS (3)
  - Negative thoughts [None]
  - Nightmare [None]
  - Abnormal dreams [None]
